FAERS Safety Report 8591365-8 (Version None)
Quarter: 2012Q3

REPORT INFORMATION
  Report Type: 
  Country: None (occurrence: None)
  Receive Date: 20120726
  Receipt Date: 20120724
  Transmission Date: 20120928
  Serious: Yes (Other)
  Sender: FDA-Public Use
  Company Number: 2012031105

PATIENT
  Sex: Female
  Weight: 60.782 kg

DRUGS (16)
  1. FAMOTIDINE [Concomitant]
  2. PATANASE [Concomitant]
  3. HIZENTRA [Suspect]
     Dosage: 40 ML IN SITES FOR 1-2 HOURS SUBCUTANEOUS), (4 GM 20 ML VIAL SUBCUTANEOUS)
     Route: 058
  4. SINGULAIR [Concomitant]
  5. ZYRTEC [Concomitant]
  6. ZOMIG [Concomitant]
  7. VITAMIN D [Concomitant]
  8. ASPIRIN [Concomitant]
  9. PROAIR (PROCATEROL HYDROCHLORIDE) [Concomitant]
  10. HIZENTRA [Suspect]
     Indication: IMMUNODEFICIENCY COMMON VARIABLE
     Dosage: (8 G
     Route: 058
  11. ACETAMINOPHEN [Concomitant]
  12. NYSTATIN [Concomitant]
  13. EFFEXOR [Concomitant]
  14. FIORICET (AXOTAL) [Concomitant]
  15. LAMICTAL [Concomitant]
  16. MULTIVITAMIN (ACCOMIN MULTIVITAMIN) [Concomitant]

REACTIONS (4)
  - BRONCHITIS [None]
  - UPPER RESPIRATORY TRACT INFECTION [None]
  - PNEUMONIA [None]
  - SINUSITIS [None]
